FAERS Safety Report 7926081-6 (Version None)
Quarter: 2011Q4

REPORT INFORMATION
  Report Type: 
  Country: None (occurrence: None)
  Receive Date: 20111118
  Receipt Date: 20110418
  Transmission Date: 20120403
  Serious: Yes (Other)
  Sender: FDA-Public Use
  Company Number: US-AMGEN-USASP2011020324

PATIENT
  Age: 57 Year
  Sex: Male

DRUGS (4)
  1. ENBREL [Suspect]
     Indication: ANKYLOSING SPONDYLITIS
  2. ENBREL [Suspect]
     Indication: RHEUMATOID ARTHRITIS
     Dates: start: 20110404
  3. ENBREL [Suspect]
     Indication: PSORIATIC ARTHROPATHY
  4. TREXALL [Concomitant]
     Dosage: 1 MG, UNK
     Dates: start: 20070101

REACTIONS (5)
  - LIP SWELLING [None]
  - HYPERSENSITIVITY [None]
  - INJECTION SITE HAEMATOMA [None]
  - WHEEZING [None]
  - SWOLLEN TONGUE [None]
